FAERS Safety Report 4835719-1 (Version None)
Quarter: 2005Q4

REPORT INFORMATION
  Report Type: 
  Country: None (occurrence: None)
  Receive Date: 20051123
  Receipt Date: 20051114
  Transmission Date: 20060501
  Serious: Yes (Other)
  Sender: FDA-Public Use
  Company Number: CA-JNJFOC-20051103549

PATIENT
  Weight: 70 kg

DRUGS (7)
  1. REMICADE [Suspect]
     Route: 042
  2. REMICADE [Suspect]
     Indication: RHEUMATOID ARTHRITIS
     Route: 042
  3. ANALGESICS [Concomitant]
  4. NSAIDS [Concomitant]
  5. PREDNISONE [Concomitant]
  6. METHOTREXATE [Concomitant]
  7. NARCOTIC ANALGESICS [Concomitant]

REACTIONS (3)
  - INFUSION RELATED REACTION [None]
  - MUSCLE TWITCHING [None]
  - MYOCLONUS [None]
